FAERS Safety Report 5191607-5 (Version None)
Quarter: 2006Q4

REPORT INFORMATION
  Report Type: 
  Country: None (occurrence: None)
  Receive Date: 20061219
  Receipt Date: 20061212
  Transmission Date: 20070319
  Serious: Yes (Death, Hospitalization)
  Sender: FDA-Public Use
  Company Number: TAP2006Q01811

PATIENT
  Age: 64 Year
  Sex: Male

DRUGS (5)
  1. LUPRON DEPOT-3 [Suspect]
     Indication: PROSTATE CANCER
     Dosage: 22.5 MG, 1 IN 3 M, INTRAMUSCULAR
     Route: 030
     Dates: start: 20020109, end: 20060817
  2. VASOTEC [Concomitant]
  3. APO-MEGESTROL (MEGESTROL) [Concomitant]
  4. TERAZOSIN HCL [Concomitant]
  5. GEN-GLYBE (GLIBENCLAMIDE) [Concomitant]

REACTIONS (2)
  - FEBRILE NEUTROPENIA [None]
  - PNEUMONIA [None]
